FAERS Safety Report 7077941-2 (Version None)
Quarter: 2010Q4

REPORT INFORMATION
  Report Type: 
  Country: None (occurrence: None)
  Receive Date: 20101101
  Receipt Date: 20101026
  Transmission Date: 20110411
  Serious: Yes (Other)
  Sender: FDA-Public Use
  Company Number: US-MERCK-1010USA00433

PATIENT
  Age: 42 Year
  Sex: Female

DRUGS (3)
  1. CLINORIL [Suspect]
     Indication: ARTHRITIS
     Route: 048
     Dates: start: 19820101, end: 20101001
  2. AZULFIDINE [Concomitant]
     Route: 065
  3. CLINORIL [Suspect]
     Route: 048
     Dates: start: 20101001

REACTIONS (3)
  - ABDOMINAL DISCOMFORT [None]
  - GASTROINTESTINAL PAIN [None]
  - SOFT TISSUE NEOPLASM [None]
